FAERS Safety Report 8210814-8 (Version None)
Quarter: 2012Q1

REPORT INFORMATION
  Report Type: 
  Country: None (occurrence: None)
  Receive Date: 20120315
  Receipt Date: 20120309
  Transmission Date: 20120608
  Serious: No
  Sender: FDA-Public Use
  Company Number: US-BIOGENIDEC-2012BI008756

PATIENT
  Sex: Female

DRUGS (2)
  1. AVONEX [Concomitant]
     Indication: MULTIPLE SCLEROSIS
     Route: 030
  2. TYSABRI [Suspect]
     Indication: MULTIPLE SCLEROSIS
     Route: 042
     Dates: start: 20111115

REACTIONS (10)
  - POLLAKIURIA [None]
  - DYSSTASIA [None]
  - NIGHT SWEATS [None]
  - URINARY INCONTINENCE [None]
  - PYREXIA [None]
  - FUNGAL INFECTION [None]
  - PERIPHERAL COLDNESS [None]
  - INSOMNIA [None]
  - DRY MOUTH [None]
  - FATIGUE [None]
